FAERS Safety Report 17298344 (Version 1)
Quarter: 2020Q1

REPORT INFORMATION
  Report Type: Spontaneous
  Country: GB (occurrence: GB)
  Receive Date: 20200121
  Receipt Date: 20200121
  Transmission Date: 20200409
  Serious: Yes (Other)
  Sender: FDA-Public Use
  Company Number: GB-NAPPMUNDI-GBR-2020-0074383

PATIENT
  Sex: Female

DRUGS (2)
  1. BUTEC [Suspect]
     Active Substance: BUPRENORPHINE
     Indication: HIP ARTHROPLASTY
     Dosage: UNK
     Route: 065
  2. TRAMADOL HYDROCHLORIDE. [Suspect]
     Active Substance: TRAMADOL HYDROCHLORIDE
     Indication: HIP ARTHROPLASTY
     Route: 065

REACTIONS (3)
  - Cardiac disorder [Unknown]
  - Headache [Recovering/Resolving]
  - Rash [Recovering/Resolving]
